FAERS Safety Report 4874808-2 (Version None)
Quarter: 2006Q1

REPORT INFORMATION
  Report Type: 
  Country: None (occurrence: None)
  Receive Date: 20060109
  Receipt Date: 20060103
  Transmission Date: 20060701
  Serious: Yes (Other)
  Sender: FDA-Public Use
  Company Number: 2006UW00108

PATIENT
  Sex: Female

DRUGS (2)
  1. SEROQUEL [Suspect]
     Route: 048
  2. DEPAKOTE [Suspect]

REACTIONS (2)
  - BLINDNESS [None]
  - BLINDNESS TRANSIENT [None]
